FAERS Safety Report 9278756 (Version 3)
Quarter: 2014Q2

REPORT INFORMATION
  Report Type: Report from Study
  Country: NL (occurrence: NL)
  Receive Date: 20130508
  Receipt Date: 20140522
  Transmission Date: 20141212
  Serious: Yes (Hospitalization)
  Sender: FDA-Public Use
  Company Number: NL-ASTRAZENECA-2013SE31158

PATIENT
  Age: 20206 Day
  Sex: Male

DRUGS (14)
  1. VANDETANIB [Suspect]
     Indication: MEDULLARY THYROID CANCER
     Route: 048
     Dates: start: 20121129, end: 20130428
  2. VANDETANIB [Suspect]
     Indication: MEDULLARY THYROID CANCER
     Dosage: REDUCED DOSE, DAILY
     Route: 048
     Dates: start: 20130516
  3. THYRAX [Concomitant]
     Indication: HYPOTHYROIDISM
     Route: 048
     Dates: end: 20130128
  4. THYRAX [Concomitant]
     Indication: BLOOD THYROID STIMULATING HORMONE INCREASED
     Route: 048
     Dates: end: 20130128
  5. THYRAX [Concomitant]
     Indication: HYPOTHYROIDISM
     Route: 048
     Dates: start: 20130129, end: 20130227
  6. THYRAX [Concomitant]
     Indication: BLOOD THYROID STIMULATING HORMONE INCREASED
     Route: 048
     Dates: start: 20130129, end: 20130227
  7. THYRAX [Concomitant]
     Indication: HYPOTHYROIDISM
     Route: 048
     Dates: start: 20130228
  8. THYRAX [Concomitant]
     Indication: BLOOD THYROID STIMULATING HORMONE INCREASED
     Route: 048
     Dates: start: 20130228
  9. ALFACALCIDOL [Concomitant]
     Indication: HYPOCALCAEMIA
     Route: 048
  10. LOPERAMIDE [Concomitant]
     Indication: DIARRHOEA
     Route: 048
  11. KETOCONAZOL [Concomitant]
     Indication: RASH
     Route: 003
     Dates: start: 20130124
  12. KETOCONAZOL [Concomitant]
     Indication: RASH
     Route: 003
     Dates: start: 20130124
  13. CALCIUM [Concomitant]
     Indication: HYPOCALCAEMIA
     Route: 048
  14. MINOCYCLINE [Concomitant]
     Indication: RASH
     Route: 048
     Dates: start: 20130516

REACTIONS (1)
  - Acute myocardial infarction [Recovered/Resolved]
